FAERS Safety Report 6723334-4 (Version None)
Quarter: 2010Q2

REPORT INFORMATION
  Report Type: 
  Country: None (occurrence: None)
  Receive Date: 20100513
  Receipt Date: 20100430
  Transmission Date: 20101027
  Serious: Yes (Other)
  Sender: FDA-Public Use
  Company Number: US-RB-007991-10

PATIENT
  Age: 74 Year
  Sex: Female

DRUGS (6)
  1. MUCINEX [Suspect]
     Dosage: TAKING 1 PILL A DAY
     Route: 048
     Dates: start: 20100426
  2. MUCINEX [Suspect]
     Dosage: TOOK ONE PILL EVERY 12 HOURS
     Route: 048
     Dates: start: 20100419
  3. MUCINEX DM [Suspect]
     Indication: RESPIRATORY TRACT CONGESTION
     Dosage: TOOK ONE PILL EVERY 12 HOURS FOR TWO DOSES
     Route: 048
     Dates: start: 20100423
  4. DETROL [Concomitant]
  5. NEXIUM [Concomitant]
  6. SYNTHROID [Concomitant]

REACTIONS (5)
  - BLOOD PRESSURE INCREASED [None]
  - DRUG INEFFECTIVE [None]
  - FEELING ABNORMAL [None]
  - HEADACHE [None]
  - PSYCHOMOTOR HYPERACTIVITY [None]
